FAERS Safety Report 26148642 (Version 1)
Quarter: 2025Q4

REPORT INFORMATION
  Report Type: Spontaneous
  Country: JP (occurrence: JP)
  Receive Date: 20251212
  Receipt Date: 20251212
  Transmission Date: 20260117
  Serious: Yes (Other)
  Sender: AMGEN
  Company Number: JP-DSJP-DS-2025-182178-

PATIENT
  Age: 70 Year
  Sex: Female

DRUGS (9)
  1. DENOSUMAB [Suspect]
     Active Substance: DENOSUMAB
     Indication: Metastases to bone
     Dosage: 120 MG
     Route: 058
     Dates: start: 20221206
  2. AFINITOR [Suspect]
     Active Substance: EVEROLIMUS
     Indication: HER2 low breast cancer
     Dosage: UNK
     Route: 065
     Dates: start: 20230404, end: 20230502
  3. FEMARA [Concomitant]
     Active Substance: LETROZOLE
     Indication: HER2 low breast cancer
     Dosage: 1 MG/DAY
     Route: 065
     Dates: start: 20221122, end: 20230331
  4. VERZENIO [Concomitant]
     Active Substance: ABEMACICLIB
     Indication: HER2 low breast cancer
     Dosage: 150 MG
     Route: 065
     Dates: start: 20221206, end: 20230331
  5. EXEMESTANE [Concomitant]
     Active Substance: EXEMESTANE
     Indication: HER2 low breast cancer
     Dosage: UNK
     Route: 065
     Dates: start: 20230404, end: 20230502
  6. TS-1 [Concomitant]
     Active Substance: GIMERACIL\OTERACIL POTASSIUM\TEGAFUR
     Indication: HER2 low breast cancer
     Dosage: UNK
     Route: 065
     Dates: start: 20230704, end: 20231231
  7. PACLITAXEL [Concomitant]
     Active Substance: PACLITAXEL
     Indication: HER2 low breast cancer
     Dosage: WEEKLY, 4 COURSES
     Route: 065
     Dates: start: 20240111, end: 20240207
  8. PACLITAXEL [Concomitant]
     Active Substance: PACLITAXEL
     Dosage: WEEKLY, 4 COURSES
     Route: 065
     Dates: start: 20250605, end: 20250910
  9. LYNPARZA [Concomitant]
     Active Substance: OLAPARIB
     Indication: HER2 low breast cancer
     Dosage: UNK
     Route: 065
     Dates: start: 20240208, end: 20250131

REACTIONS (2)
  - Interstitial lung disease [Unknown]
  - Osteonecrosis of jaw [Unknown]

NARRATIVE: CASE EVENT DATE: 20230502
